FAERS Safety Report 10008457 (Version 4)
Quarter: 2015Q2

REPORT INFORMATION
  Report Type: Spontaneous
  Country: GB (occurrence: GB)
  Receive Date: 20140313
  Receipt Date: 20150601
  Transmission Date: 20150821
  Serious: Yes (Hospitalization, Other)
  Sender: FDA-Public Use
  Company Number: GB-TEVA-466022ISR

PATIENT
  Age: 57 Year
  Sex: Male
  Weight: 113 kg

DRUGS (7)
  1. CISPLATIN. [Suspect]
     Active Substance: CISPLATIN
     Indication: GASTRIC CANCER
     Dosage: MOST RECENT DOSE ADMINISTERED: 29/MAY/2013
     Route: 042
     Dates: start: 20130508
  2. XELODA [Suspect]
     Active Substance: CAPECITABINE
     Indication: GASTRIC CANCER
     Dosage: MOST RECENT DOSE ADMINISTERED: 29/MAY/2013.
     Route: 048
     Dates: start: 20130508
  3. EPIRUBICIN [Suspect]
     Active Substance: EPIRUBICIN
     Indication: GASTRIC CANCER
     Dosage: MOST RECENT DOSE ADMINISTERED: 29/MAY/2013
     Route: 042
     Dates: start: 20130508
  4. PERINDOPRIL [Concomitant]
     Active Substance: PERINDOPRIL
     Route: 042
     Dates: start: 20130529
  5. LANSOPRAZOLE. [Concomitant]
     Active Substance: LANSOPRAZOLE
     Route: 042
     Dates: start: 20130508
  6. AVASTIN [Suspect]
     Active Substance: BEVACIZUMAB
     Indication: GASTRIC CANCER
     Dosage: MOST RECENT DOSE ADMINISTERED: 08/MAY/2013
     Route: 042
     Dates: start: 20130508
  7. BISOPROLOL [Concomitant]
     Active Substance: BISOPROLOL
     Route: 042
     Dates: start: 20130612

REACTIONS (6)
  - Atrial fibrillation [Unknown]
  - Dyspnoea [Recovered/Resolved]
  - Pyrexia [Recovered/Resolved]
  - Chest pain [Not Recovered/Not Resolved]
  - Sinus tachycardia [Unknown]
  - Pneumonitis [Unknown]

NARRATIVE: CASE EVENT DATE: 20130525
